FAERS Safety Report 5424645-5 (Version None)
Quarter: 2007Q3

REPORT INFORMATION
  Report Type: 
  Country: None (occurrence: None)
  Receive Date: 20070727
  Receipt Date: 20070629
  Transmission Date: 20080115
  Serious: No
  Sender: FDA-Public Use
  Company Number: 265066

PATIENT
  Age: 76 Year
  Sex: Female

DRUGS (1)
  1. LEVEMIR [Suspect]
     Indication: TYPE 2 DIABETES MELLITUS
     Dosage: 32 IU, QD, SUBCUTANEOUS; 46 IU, QD, SUBCUTANEOUS
     Route: 058
     Dates: start: 20070501

REACTIONS (1)
  - BLOOD GLUCOSE INCREASED [None]
